FAERS Safety Report 22042026 (Version 2)
Quarter: 2023Q1

REPORT INFORMATION
  Report Type: Spontaneous
  Country: US (occurrence: US)
  Receive Date: 20230227
  Receipt Date: 20230314
  Transmission Date: 20230417
  Serious: Yes (Hospitalization, Other)
  Sender: FDA-Public Use
  Company Number: US-CARA THERAPEUTICS, INC.-2023-00062-US

PATIENT
  Sex: Male
  Weight: 103 kg

DRUGS (16)
  1. KORSUVA [Suspect]
     Active Substance: DIFELIKEFALIN ACETATE
     Indication: Product used for unknown indication
     Dosage: 1 ML, BASED ON PATIENT^S DIALYSIS WEIGHT (DW), UNK
     Route: 065
     Dates: start: 20220906, end: 20220910
  2. KORSUVA [Suspect]
     Active Substance: DIFELIKEFALIN ACETATE
     Dosage: UNK
     Route: 065
  3. KORSUVA [Suspect]
     Active Substance: DIFELIKEFALIN ACETATE
     Dosage: UNK
     Route: 065
     Dates: start: 20230126, end: 20230204
  4. VELPHORO [Suspect]
     Active Substance: SUCROFERRIC OXYHYDROXIDE
     Indication: Product used for unknown indication
     Dosage: UNK
     Route: 065
  5. ASPIRIN [Concomitant]
     Active Substance: ASPIRIN
  6. SENSIPAR [Concomitant]
     Active Substance: CINACALCET HYDROCHLORIDE
  7. PLAVIX [Concomitant]
     Active Substance: CLOPIDOGREL BISULFATE
  8. DOCUSATE [Concomitant]
     Active Substance: DOCUSATE
  9. FOLIC ACID [Concomitant]
     Active Substance: FOLIC ACID
  10. LACTULOSE [Concomitant]
     Active Substance: LACTULOSE
  11. METHOCARBAMOL [Concomitant]
     Active Substance: METHOCARBAMOL
  12. METOPROLOL [Concomitant]
     Active Substance: METOPROLOL
  13. MIDODRINE [Concomitant]
     Active Substance: MIDODRINE
     Dosage: UNK, ONLY GIVEN DURING HEMODIALYSIS (HD)
     Route: 065
  14. PANTOPRAZOLE [Concomitant]
     Active Substance: PANTOPRAZOLE
  15. ROSUVASTATIN [Concomitant]
     Active Substance: ROSUVASTATIN
  16. TYLENOL [Concomitant]
     Active Substance: ACETAMINOPHEN

REACTIONS (5)
  - Supraventricular tachycardia [Recovering/Resolving]
  - Atrial fibrillation [Recovering/Resolving]
  - Chest pain [Recovering/Resolving]
  - Coronary artery stenosis [Recovering/Resolving]
  - Unevaluable event [Unknown]

NARRATIVE: CASE EVENT DATE: 20220910
